FAERS Safety Report 5356305-3 (Version None)
Quarter: 2007Q2

REPORT INFORMATION
  Report Type: 
  Country: None (occurrence: None)
  Receive Date: 20070613
  Receipt Date: 20070604
  Transmission Date: 20071010
  Serious: Yes (Other)
  Sender: FDA-Public Use
  Company Number: US-PFIZER INC-2007045386

PATIENT
  Age: 54 Year
  Sex: Female

DRUGS (1)
  1. SOLU-MEDROL [Suspect]
     Indication: MULTIPLE SCLEROSIS
     Dosage: DAILY DOSE:1000MG-FREQ:BIMONTHLY
     Route: 042

REACTIONS (1)
  - HEPATIC NECROSIS [None]
